FAERS Safety Report 6144701-6 (Version None)
Quarter: 2009Q2

REPORT INFORMATION
  Report Type: 
  Country: None (occurrence: None)
  Receive Date: 20090406
  Receipt Date: 20090401
  Transmission Date: 20091009
  Serious: Yes (Other)
  Sender: FDA-Public Use
  Company Number: B0567950A

PATIENT
  Sex: Male

DRUGS (2)
  1. RELENZA [Suspect]
     Indication: INFLUENZA
     Dosage: 10MG TWICE PER DAY
     Route: 055
     Dates: start: 20090212
  2. CALONAL [Concomitant]
     Dosage: 200MG TWICE PER DAY
     Route: 065

REACTIONS (2)
  - AGITATION [None]
  - HALLUCINATION [None]
